FAERS Safety Report 24843159 (Version 3)
Quarter: 2025Q2

REPORT INFORMATION
  Report Type: Report from Study
  Country: US (occurrence: US)
  Receive Date: 20250115
  Receipt Date: 20250403
  Transmission Date: 20250716
  Serious: Yes (Other)
  Sender: JAZZ
  Company Number: US-JAZZ PHARMACEUTICALS-2025-US-000339

PATIENT
  Sex: Female

DRUGS (4)
  1. XYWAV [Suspect]
     Active Substance: CALCIUM OXYBATE\MAGNESIUM OXYBATE\POTASSIUM OXYBATE\SODIUM OXYBATE
     Indication: Hypersomnia
     Dosage: 2.5 GRAM, BID
     Dates: start: 20241220
  2. NALTREXONE [Suspect]
     Active Substance: NALTREXONE
     Indication: Product used for unknown indication
  3. ATORVASTATIN [Suspect]
     Active Substance: ATORVASTATIN
     Indication: Product used for unknown indication
  4. PROVIGIL [Concomitant]
     Active Substance: MODAFINIL
     Indication: Product used for unknown indication

REACTIONS (14)
  - Nephrolithiasis [Unknown]
  - Weight decreased [Unknown]
  - Nasopharyngitis [Recovering/Resolving]
  - Moaning [Unknown]
  - Blood cholesterol increased [Unknown]
  - Blood triglycerides increased [Unknown]
  - Pain [Unknown]
  - Insomnia [Unknown]
  - Somnolence [Unknown]
  - Middle insomnia [Unknown]
  - Headache [Unknown]
  - Decreased appetite [Unknown]
  - Abnormal dreams [Unknown]
  - Product dose omission issue [Unknown]
